FAERS Safety Report 17639113 (Version 1)
Quarter: 2020Q2

REPORT INFORMATION
  Report Type: Spontaneous
  Country: US (occurrence: US)
  Receive Date: 20200407
  Receipt Date: 20200407
  Transmission Date: 20200713
  Serious: Yes (Hospitalization, Other)
  Sender: FDA-Public Use
  Company Number: US-VISTAPHARM, INC.-VER202003-000719

PATIENT
  Age: 6 Year
  Sex: Female

DRUGS (4)
  1. MYCOPHENOLATE MOFETIL, USP [Suspect]
     Active Substance: MYCOPHENOLATE MOFETIL
     Indication: AUTOIMMUNE HEPATITIS
     Dosage: UNKNOWN
  2. AZATHIOPRINE. [Concomitant]
     Active Substance: AZATHIOPRINE
     Indication: FIBROSIS
     Dosage: UNKNOWN
  3. PREDNISONE. [Concomitant]
     Active Substance: PREDNISONE
     Indication: PRODUCT USED FOR UNKNOWN INDICATION
     Dosage: 2? MG/KG/DAY (30 MG DAILY)
  4. PREDNISONE. [Concomitant]
     Active Substance: PREDNISONE
     Dosage: 30?MG DAILY

REACTIONS (5)
  - Parainfluenzae virus infection [Recovered/Resolved]
  - Condition aggravated [Recovered/Resolved]
  - Product use in unapproved indication [Unknown]
  - International normalised ratio increased [Recovered/Resolved]
  - Respiratory syncytial virus infection [Recovered/Resolved]
